FAERS Safety Report 9507604 (Version 1)
Quarter: 2013Q3

REPORT INFORMATION
  Report Type: Spontaneous
  Country: FR (occurrence: FR)
  Receive Date: 20130909
  Receipt Date: 20130909
  Transmission Date: 20140515
  Serious: Yes (Life-Threatening, Hospitalization, Congenital Anomaly, Other)
  Sender: FDA-Public Use
  Company Number: FR-ELI_LILLY_AND_COMPANY-FR201308008934

PATIENT
  Age: 0 Day
  Sex: 0

DRUGS (4)
  1. ZYPREXA [Suspect]
     Indication: BIPOLAR DISORDER
     Dosage: 1 DF, UNKNOWN
     Route: 064
  2. ZYPREXA [Suspect]
     Dosage: 72 DF, SINGLE
     Route: 064
  3. SERTRALINE [Suspect]
     Indication: BIPOLAR DISORDER
     Dosage: 1 DF, UNKNOWN
     Route: 064
  4. DIPRIVAN [Suspect]
     Dosage: 1 DF, UNKNOWN
     Route: 064

REACTIONS (9)
  - Nervous system disorder [Recovered/Resolved]
  - Foetal arrhythmia [Recovered/Resolved]
  - Neonatal respiratory distress syndrome [Recovered/Resolved]
  - Congenital hyperextension of spine [Unknown]
  - Cardiac malposition [Unknown]
  - Hypotonia neonatal [Unknown]
  - Hepatocellular injury [Recovered/Resolved]
  - Weight decreased [Recovered/Resolved]
  - Foetal exposure during pregnancy [Unknown]
